FAERS Safety Report 4570619-6 (Version None)
Quarter: 2005Q1

REPORT INFORMATION
  Report Type: 
  Country: None (occurrence: None)
  Receive Date: 20050204
  Receipt Date: 20050125
  Transmission Date: 20050727
  Serious: Yes (Death)
  Sender: FDA-Public Use
  Company Number: 392290

PATIENT
  Age: 26 Year
  Sex: Male

DRUGS (1)
  1. CARVEDILOL [Suspect]
     Indication: ESSENTIAL HYPERTENSION
     Dosage: 10MG PER DAY
     Route: 048
     Dates: start: 20031204

REACTIONS (1)
  - SUDDEN DEATH [None]
